FAERS Safety Report 6218696-0 (Version None)
Quarter: 2009Q2

REPORT INFORMATION
  Report Type: 
  Country: None (occurrence: None)
  Receive Date: 20090608
  Receipt Date: 20090320
  Transmission Date: 20091009
  Serious: Yes (Other)
  Sender: FDA-Public Use
  Company Number: FR-PFIZER-2009190598

PATIENT
  Age: 9 Year

DRUGS (2)
  1. SOLU-MEDROL [Suspect]
     Indication: EAR INFECTION
     Dosage: 40 MG, 2X/DAY
     Dates: start: 20090319
  2. NASONEX [Concomitant]
     Dosage: UNK
     Dates: start: 20090319

REACTIONS (3)
  - CHEST PAIN [None]
  - INCORRECT DRUG DOSAGE FORM ADMINISTERED [None]
  - TACHYCARDIA [None]
